FAERS Safety Report 9198878 (Version 1)
Quarter: 2013Q1

REPORT INFORMATION
  Report Type: Spontaneous
  Country: DK (occurrence: DK)
  Receive Date: 20130329
  Receipt Date: 20130329
  Transmission Date: 20140127
  Serious: Yes (Other)
  Sender: FDA-Public Use
  Company Number: PHHY2013DK029855

PATIENT
  Age: 77 Year
  Sex: Female

DRUGS (3)
  1. METFORMIN HYDROCHLORIDE SANDOZ [Suspect]
     Indication: TYPE 2 DIABETES MELLITUS
     Dosage: 1 DF, TID
     Route: 048
     Dates: start: 2011, end: 201203
  2. SIMVASTATIN [Concomitant]
     Indication: HYPERCHOLESTEROLAEMIA
     Dosage: 10 MG, DAILY
  3. LATANOPROST [Concomitant]
     Indication: GLAUCOMA

REACTIONS (6)
  - Uterine prolapse [Unknown]
  - Weight decreased [Recovered/Resolved]
  - Constipation [Recovered/Resolved]
  - Nausea [Recovered/Resolved]
  - Decreased appetite [Recovered/Resolved]
  - Rash generalised [Recovering/Resolving]
